FAERS Safety Report 5354511-5 (Version None)
Quarter: 2007Q2

REPORT INFORMATION
  Report Type: 
  Country: None (occurrence: None)
  Receive Date: 20070612
  Receipt Date: 20070531
  Transmission Date: 20071010
  Serious: Yes (Other)
  Sender: FDA-Public Use
  Company Number: US-SHR-US-2006-038193

PATIENT
  Age: 72 Year
  Sex: Female

DRUGS (26)
  1. MAGNEVIST [Suspect]
     Dosage: 20 ML, 1 DOSE
     Dates: start: 20040108, end: 20040108
  2. MAGNEVIST [Suspect]
     Dosage: 20 ML, 1 DOSE
     Route: 042
     Dates: start: 20040113, end: 20040113
  3. MAGNEVIST [Suspect]
     Dosage: 40 ML, 1 DOSE
     Route: 042
     Dates: start: 20040523, end: 20040523
  4. MAGNEVIST [Suspect]
     Dosage: 60 ML, 1 DOSE
     Route: 042
     Dates: start: 20050408, end: 20050408
  5. MAGNEVIST [Suspect]
     Dosage: 20 ML, 1 DOSE
     Dates: start: 20050422, end: 20050422
  6. MAGNEVIST [Suspect]
     Dosage: 20 ML, 1 DOSE
     Dates: start: 20050424, end: 20050424
  7. MAGNEVIST [Suspect]
     Dosage: 60 ML, 1 DOSE
     Dates: start: 20050628, end: 20050628
  8. MAGNEVIST [Suspect]
     Dosage: 20 ML, 1 DOSE
     Route: 042
     Dates: start: 20051027, end: 20051027
  9. MAGNEVIST [Suspect]
     Dosage: 60 ML, 1 DOSE
     Dates: start: 20051213, end: 20051213
  10. MAGNEVIST [Suspect]
     Dosage: 20 ML, 1 DOSE
     Dates: start: 20060228, end: 20060228
  11. CONTRAST MEDIA [Concomitant]
     Dosage: UNK, 1 DOSE
     Dates: start: 20060804, end: 20060804
  12. CONTRAST MEDIA [Concomitant]
     Dosage: UNK, 1 DOSE
     Dates: start: 20060805, end: 20060805
  13. EPOGEN [Concomitant]
  14. REGLAN [Concomitant]
  15. IMODIUM [Concomitant]
  16. PHOSLO [Concomitant]
  17. ATORVASTATIN CALCIUM [Concomitant]
  18. NITROGLYCERINUM ^ARGON^ [Concomitant]
  19. TOPROL-XL [Concomitant]
  20. PLAVIX [Concomitant]
  21. ASPIRIN [Concomitant]
  22. GLIPIZIDE [Concomitant]
  23. VOLTAREN [Concomitant]
  24. IMDUR [Concomitant]
  25. OXYCODONE HCL [Concomitant]
  26. KAYEXALATE [Concomitant]

REACTIONS (1)
  - NEPHROGENIC FIBROSING DERMOPATHY [None]
